FAERS Safety Report 8805733 (Version 1)
Quarter: 2012Q4

REPORT INFORMATION
  Report Type: 
  Country: JP (occurrence: JP)
  Receive Date: 20120924
  Receipt Date: 20120924
  Transmission Date: 20130627
  Serious: Yes (Other)
  Sender: FDA-Public Use
  Company Number: JP-MERCK-1209JPN008124

PATIENT
  Age: 64 Year
  Sex: Male

DRUGS (12)
  1. GASTER [Suspect]
     Dosage: 20 mg, qd
     Route: 048
  2. HALCION [Concomitant]
  3. CLARITH [Concomitant]
     Route: 048
  4. MUCOSTA [Concomitant]
  5. EUGLUCON [Concomitant]
  6. METGLUCO [Concomitant]
  7. JANUVIA TABLETS 25MG [Concomitant]
     Route: 048
  8. BASEN [Concomitant]
  9. MOBIC [Concomitant]
  10. MAGLAX (MAGNESIUM OXIDE) [Concomitant]
     Route: 048
  11. DEPAS [Concomitant]
     Route: 048
  12. PL-GRANULES [Concomitant]

REACTIONS (1)
  - Retinal haemorrhage [Unknown]
